FAERS Safety Report 12189696 (Version 1)
Quarter: 2016Q1

REPORT INFORMATION
  Report Type: Spontaneous
  Country: GB (occurrence: GB)
  Receive Date: 20160318
  Receipt Date: 20160318
  Transmission Date: 20160526
  Serious: Yes (Disabling)
  Sender: FDA-Public Use
  Company Number: GB-ASTRAZENECA-2016SE27689

PATIENT
  Age: 72 Year
  Sex: Male
  Weight: 84 kg

DRUGS (15)
  1. AMOXICILLIN. [Concomitant]
     Active Substance: AMOXICILLIN
     Dates: start: 20160125, end: 20160130
  2. AMITRIPTYLINE HYDROCHLORIDE. [Concomitant]
     Active Substance: AMITRIPTYLINE HYDROCHLORIDE
     Dosage: TAKE 1 OR 2 EVERY EVENING 2 HOURS BEFORE BEDTIME
     Dates: start: 20151109
  3. CARBOCISTEINE [Concomitant]
     Active Substance: CARBOCYSTEINE
     Dosage: 2 TWICE DAILY OR AS DIRECTED
     Dates: start: 20150121
  4. LACTULOSE. [Concomitant]
     Active Substance: LACTULOSE
     Dates: start: 20160229
  5. LYMECYCLINE [Concomitant]
     Active Substance: LYMECYCLINE
     Dates: start: 20150916
  6. SPIRIVA [Concomitant]
     Active Substance: TIOTROPIUM BROMIDE MONOHYDRATE
     Dosage: TWO PUFFS, EVERY DAY
     Route: 055
     Dates: start: 20160229
  7. EKLIRA GENUAIR [Suspect]
     Active Substance: ACLIDINIUM BROMIDE
     Route: 055
     Dates: start: 20160210
  8. RAMIPRIL. [Concomitant]
     Active Substance: RAMIPRIL
     Dates: start: 20151109
  9. SALBUTAMOL [Concomitant]
     Active Substance: ALBUTEROL
     Dosage: 2 PUFFS, UNKNOWN
     Route: 055
     Dates: start: 20151013
  10. TIOTROPIUM [Concomitant]
     Active Substance: TIOTROPIUM
     Dates: start: 20151013, end: 20160210
  11. PREDNISOLONE. [Concomitant]
     Active Substance: PREDNISOLONE
     Dates: start: 20160210, end: 20160217
  12. COCODAMOL [Concomitant]
     Active Substance: ACETAMINOPHEN\CODEINE PHOSPHATE
     Dosage: 2 FOUR TIMES A DAY WHEN REQUIRED
     Dates: start: 20151109
  13. ATORVASTATIN [Concomitant]
     Active Substance: ATORVASTATIN
     Dates: start: 20151109
  14. SERETIDE [Concomitant]
     Active Substance: FLUTICASONE FUROATE\SALMETEROL XINAFOATE
     Route: 055
     Dates: start: 20151013
  15. BECLOMETASONE [Concomitant]
     Active Substance: BECLOMETHASONE DIPROPIONATE
     Dosage: TWO PUFFS, TWO TIMES A DAY
     Route: 055
     Dates: start: 20151109

REACTIONS (1)
  - Constipation [Recovering/Resolving]

NARRATIVE: CASE EVENT DATE: 20160302
